FAERS Safety Report 10421097 (Version 1)
Quarter: 2014Q3

REPORT INFORMATION
  Report Type: Spontaneous
  Country: US (occurrence: None)
  Receive Date: 20140722
  Receipt Date: 20140722
  Transmission Date: 20150326
  Serious: No
  Sender: FDA-Public Use
  Company Number: 163-10004-14054982

PATIENT
  Age: 63 Year
  Sex: Female
  Weight: 87.54 kg

DRUGS (8)
  1. TRAMADOL [Concomitant]
     Active Substance: TRAMADOL
  2. MOTRIN [Concomitant]
     Active Substance: IBUPROFEN
  3. PROPBIOTIC (BIFDOBACTERIUM LACTIS) [Concomitant]
  4. FOLIC ACID. [Concomitant]
     Active Substance: FOLIC ACID
  5. VIT D (ERGOCALCIFEROL) [Concomitant]
     Active Substance: ERGOCALCIFEROL
  6. OTEZLA [Suspect]
     Active Substance: APREMILAST
     Indication: PSORIATIC ARTHROPATHY
     Route: 048
     Dates: start: 20140513
  7. METHOTREXATE [Concomitant]
     Active Substance: METHOTREXATE
  8. FISH OIL [Concomitant]
     Active Substance: FISH OIL

REACTIONS (2)
  - Drug ineffective [None]
  - Psoriatic arthropathy [None]
